FAERS Safety Report 6371791-8 (Version None)
Quarter: 2009Q3

REPORT INFORMATION
  Report Type: 
  Country: None (occurrence: None)
  Receive Date: 20090918
  Receipt Date: 20090918
  Transmission Date: 20100115
  Serious: Yes (Hospitalization)
  Sender: FDA-Public Use
  Company Number: None

PATIENT
  Sex: Male
  Weight: 127 kg

DRUGS (7)
  1. DL-ALPHA-LIPOIC ACID [Suspect]
     Dosage: 131700 MG
  2. COUMADIN [Concomitant]
  3. ASPIRIN [Concomitant]
  4. CLONAZEPAM [Concomitant]
  5. COMPAZINE [Concomitant]
  6. ERGOCALCIFEROL [Concomitant]
  7. LISINOPRIL [Concomitant]

REACTIONS (3)
  - ABNORMAL FAECES [None]
  - DEHYDRATION [None]
  - SYNCOPE [None]
